FAERS Safety Report 6872082-9 (Version None)
Quarter: 2010Q3

REPORT INFORMATION
  Report Type: 
  Country: None (occurrence: None)
  Receive Date: 20100723
  Receipt Date: 20100723
  Transmission Date: 20110219
  Serious: Yes (Other)
  Sender: FDA-Public Use
  Company Number: TW-ABBOTT-10P-153-0657896-00

PATIENT
  Sex: Male
  Weight: 63 kg

DRUGS (3)
  1. HUMIRA [Suspect]
     Indication: ANKYLOSING SPONDYLITIS
     Route: 058
     Dates: start: 20100126, end: 20100701
  2. MOBIC [Concomitant]
     Indication: PRODUCT USED FOR UNKNOWN INDICATION
  3. SALAZINE [Concomitant]
     Indication: PRODUCT USED FOR UNKNOWN INDICATION

REACTIONS (3)
  - COUGH [None]
  - PYREXIA [None]
  - TUBERCULOSIS [None]
